FAERS Safety Report 10630928 (Version 1)
Quarter: 2014Q4

REPORT INFORMATION
  Report Type: Spontaneous
  Country: US (occurrence: None)
  Receive Date: 20141203
  Receipt Date: 20141203
  Transmission Date: 20150529
  Serious: No
  Sender: FDA-Public Use
  Company Number: None

PATIENT
  Age: 61 Year
  Sex: Female
  Weight: 54.43 kg

DRUGS (1)
  1. BUTALBITOL 50-325-40 MIKART [Suspect]
     Active Substance: ACETAMINOPHEN\BUTALBITAL\CAFFEINE
     Indication: MIGRAINE
     Dosage: AS NEEDED FOR MIGRAINE --  --
     Dates: start: 20141126, end: 20141202

REACTIONS (2)
  - Product physical issue [None]
  - Drug ineffective [None]

NARRATIVE: CASE EVENT DATE: 20141201
